FAERS Safety Report 9476007 (Version 3)
Quarter: 2013Q3

REPORT INFORMATION
  Report Type: Report from Study
  Country: DE (occurrence: DE)
  Receive Date: 20130826
  Receipt Date: 20130924
  Transmission Date: 20140515
  Serious: Yes (Death, Life-Threatening, Hospitalization, Disabling, Other)
  Sender: FDA-Public Use
  Company Number: DE-ASTELLAS-2013EU006295

PATIENT
  Age: 39 Year
  Sex: Female
  Weight: 47 kg

DRUGS (5)
  1. ADVAGRAF [Suspect]
     Dosage: 3.5 MG, UID/QD
     Route: 048
     Dates: start: 20121105
  2. MODIGRAF [Suspect]
     Dosage: UNK
     Route: 065
  3. RITUXIMAB [Suspect]
     Dosage: 375 MG/M2, UNKNOWN/D
     Route: 042
     Dates: start: 20121030
  4. MYFORTIC [Suspect]
     Dosage: 180 MG, TID
     Route: 048
     Dates: start: 20121105, end: 20130323
  5. PREDNISOLON                        /00016201/ [Concomitant]
     Dosage: 10 MG, UNKNOWN/D
     Route: 065

REACTIONS (14)
  - Intentional drug misuse [Unknown]
  - Diverticulitis [Fatal]
  - Diverticular perforation [Fatal]
  - Sepsis [Fatal]
  - Multi-organ failure [Fatal]
  - Pneumonia [Recovered/Resolved]
  - Haematoma infection [Unknown]
  - Enterococcal infection [Unknown]
  - Impaired healing [Unknown]
  - Apathy [Unknown]
  - Tremor [Unknown]
  - Epilepsy [Unknown]
  - Kidney transplant rejection [Unknown]
  - Immunosuppressant drug level increased [Unknown]
